FAERS Safety Report 23466233 (Version 2)
Quarter: 2024Q1

REPORT INFORMATION
  Report Type: Spontaneous
  Country: JP (occurrence: JP)
  Receive Date: 20240201
  Receipt Date: 20240203
  Transmission Date: 20240410
  Serious: Yes (Other)
  Sender: FDA-Public Use
  Company Number: JP-JNJFOC-20240175544

PATIENT
  Age: 8 Decade
  Sex: Male

DRUGS (3)
  1. OPSUMIT [Suspect]
     Active Substance: MACITENTAN
     Indication: Pulmonary arterial hypertension
     Route: 048
     Dates: start: 20231223
  2. UPTRAVI [Suspect]
     Active Substance: SELEXIPAG
     Indication: Pulmonary arterial hypertension
     Dosage: DAILY
     Route: 048
     Dates: start: 20240102
  3. TADALAFIL [Concomitant]
     Active Substance: TADALAFIL
     Dosage: DOSE UNKNOWN
     Route: 048
     Dates: end: 20240106

REACTIONS (1)
  - Hypoxia [Recovered/Resolved]

NARRATIVE: CASE EVENT DATE: 20240105
